FAERS Safety Report 7560841-9 (Version None)
Quarter: 2011Q2

REPORT INFORMATION
  Report Type: 
  Country: None (occurrence: None)
  Receive Date: 20110621
  Receipt Date: 20101117
  Transmission Date: 20111010
  Serious: No
  Sender: FDA-Public Use
  Company Number: US-ASTRAZENECA-2010SE54848

PATIENT
  Age: 84 Year
  Sex: Male
  Weight: 86.2 kg

DRUGS (2)
  1. JANUVIA [Concomitant]
     Indication: DIABETES MELLITUS
  2. ATACAND [Suspect]
     Indication: BLOOD PRESSURE
     Route: 048

REACTIONS (3)
  - DIABETES MELLITUS [None]
  - POLLAKIURIA [None]
  - MALAISE [None]
